FAERS Safety Report 17332479 (Version 1)
Quarter: 2020Q1

REPORT INFORMATION
  Report Type: Spontaneous
  Country: NL (occurrence: FR)
  Receive Date: 20200128
  Receipt Date: 20200128
  Transmission Date: 20200409
  Serious: Yes (Hospitalization)
  Sender: FDA-Public Use
  Company Number: FR-FRESENIUS KABI-FK202000838

PATIENT
  Age: 82 Year
  Sex: Female
  Weight: 54 kg

DRUGS (1)
  1. PACLITAXEL (MANUFACTURER UNKNOWN) [Suspect]
     Active Substance: PACLITAXEL
     Indication: OVARIAN CANCER STAGE IV
     Route: 042
     Dates: start: 201909, end: 20191023

REACTIONS (1)
  - Cognitive disorder [Recovering/Resolving]

NARRATIVE: CASE EVENT DATE: 20191024
